FAERS Safety Report 13403356 (Version 2)
Quarter: 2017Q2

REPORT INFORMATION
  Report Type: Spontaneous
  Country: GB (occurrence: GB)
  Receive Date: 20170404
  Receipt Date: 20170512
  Transmission Date: 20170830
  Serious: Yes (Other)
  Sender: FDA-Public Use
  Company Number: GB-BEH-2017079258

PATIENT
  Age: 7 Year
  Sex: Male

DRUGS (5)
  1. HUMAN IMMUNOGLOBULIN (INN) [Suspect]
     Active Substance: HUMAN IMMUNOGLOBULIN G
     Indication: LEUKOENCEPHALOPATHY
  2. HUMAN IMMUNOGLOBULIN (INN) [Suspect]
     Active Substance: HUMAN IMMUNOGLOBULIN G
     Indication: X-LINKED CHROMOSOMAL DISORDER
  3. HUMAN IMMUNOGLOBULIN (INN) [Suspect]
     Active Substance: HUMAN IMMUNOGLOBULIN G
     Indication: HYPOGAMMAGLOBULINAEMIA
     Route: 065
  4. HUMAN IMMUNOGLOBULIN SC (INN) [Suspect]
     Active Substance: HUMAN IMMUNOGLOBULIN G
     Indication: HYPOGAMMAGLOBULINAEMIA
     Dosage: 1-2 WEEKLY INFUSIONS
     Route: 058
  5. HUMAN IMMUNOGLOBULIN SC (INN) [Suspect]
     Active Substance: HUMAN IMMUNOGLOBULIN G
     Indication: X-LINKED CHROMOSOMAL DISORDER

REACTIONS (2)
  - Drug ineffective [Unknown]
  - Leukoencephalopathy [Not Recovered/Not Resolved]
